FAERS Safety Report 8954627 (Version 1)
Quarter: 2012Q4

REPORT INFORMATION
  Report Type: 
  Country: DE (occurrence: DE)
  Receive Date: 20121207
  Receipt Date: 20121207
  Transmission Date: 20130627
  Serious: Yes (Other)
  Sender: FDA-Public Use
  Company Number: DE-MYLANLABS-2012S1024492

PATIENT
  Sex: Female
  Weight: 79 kg

DRUGS (2)
  1. AMITRIPTYLINE [Suspect]
     Indication: DEPRESSION
     Dosage: 50 [mg/d ]/ retard oral preparation
     Route: 048
     Dates: start: 20110923, end: 20120319
  2. CELESTAN /00008501/ [Concomitant]
     Indication: MATERNAL THERAPY TO ENHANCE FOETAL LUNG MATURITY
     Route: 030
     Dates: start: 20120314, end: 20120315

REACTIONS (4)
  - Foetal growth restriction [Not Recovered/Not Resolved]
  - Oligohydramnios [Recovered/Resolved]
  - Foetal death [Recovered/Resolved]
  - Exposure during pregnancy [Recovered/Resolved]
